FAERS Safety Report 8896491 (Version 11)
Quarter: 2014Q2

REPORT INFORMATION
  Report Type: Spontaneous
  Country: US (occurrence: None)
  Receive Date: 20121101
  Receipt Date: 20140625
  Transmission Date: 20141212
  Serious: Yes (Hospitalization)
  Sender: FDA-Public Use
  Company Number: HA12-309-AE

PATIENT
  Age: 68 Year
  Sex: Female
  Weight: 114.5 kg

DRUGS (23)
  1. ATORVASTATIN (LIPTOR) [Concomitant]
  2. ACETYLSALICYLIC ACID (ASPIRIN) [Concomitant]
  3. GABAPENTIN [Concomitant]
  4. IBUPROFEN [Suspect]
     Indication: OSTEOARTHRITIS
     Route: 048
     Dates: start: 20110622, end: 20120627
  5. IBUPROFEN [Suspect]
     Indication: RHEUMATOID ARTHRITIS
     Route: 048
     Dates: start: 20110622, end: 20120627
  6. PLACEBO [Suspect]
     Route: 048
     Dates: start: 20110622, end: 20120626
  7. AMITRIPTYLINE [Concomitant]
  8. NAPROXEN TABLETS, USP [Suspect]
     Indication: RHEUMATOID ARTHRITIS
     Dosage: THRICE DALY, ORAL
     Route: 048
     Dates: start: 20110622, end: 20120627
  9. NAPROXEN TABLETS, USP [Suspect]
     Indication: OSTEOARTHRITIS
     Dosage: THRICE DALY, ORAL
     Route: 048
     Dates: start: 20110622, end: 20120627
  10. CELECOXIB; IBUPROFEN; PLACEBO [Suspect]
     Indication: RHEUMATOID ARTHRITIS
     Dosage: THRICE DAILY, ORAL
     Route: 048
     Dates: start: 20110622, end: 20120627
  11. CELECOXIB; IBUPROFEN; PLACEBO [Suspect]
     Indication: OSTEOARTHRITIS
     Dosage: THRICE DAILY, ORAL
     Route: 048
     Dates: start: 20110622, end: 20120627
  12. ESOMEPRAZOLE (NEXIUM) [Concomitant]
  13. PIOGLITAZONE (ACTOS) [Concomitant]
  14. GLIMEPIRIDE [Concomitant]
  15. METFORMIN [Concomitant]
  16. CALCIUM [Concomitant]
  17. AMLODIPINE/BENAZEPRIL HYDROCHLORIDE (LOTREL) [Concomitant]
  18. VALSARTAN (DIOVAN) [Concomitant]
  19. HYDROCHLOROTHIAZIDE [Concomitant]
  20. LEVOTHYROXINE SODIUM (SYNTHROID) [Concomitant]
  21. CLOPIDOGREL SULFATE (PLAVIX) [Concomitant]
  22. OXYCODONE HYDROCHLORIDE/PARACETAMOL (PEROCET) [Concomitant]
  23. SIMVASTATIN (ZOCOR) [Concomitant]

REACTIONS (8)
  - Peripheral arterial occlusive disease [None]
  - Anaemia [None]
  - Peripheral vascular disorder [None]
  - Blood thyroid stimulating hormone increased [None]
  - Intermittent claudication [None]
  - Peripheral artery restenosis [None]
  - Aortic stenosis [None]
  - Condition aggravated [None]
